FAERS Safety Report 21044941 (Version 1)
Quarter: 2022Q3

REPORT INFORMATION
  Report Type: Report from Study
  Country: ES (occurrence: ES)
  Receive Date: 20220705
  Receipt Date: 20220705
  Transmission Date: 20221027
  Serious: Yes (Other)
  Sender: FDA-Public Use
  Company Number: ES-CELGENE-ESP-20210900115

PATIENT
  Age: 49 Year
  Sex: Male
  Weight: 80.2 kg

DRUGS (13)
  1. CYCLOPHOSPHAMIDE [Concomitant]
     Active Substance: CYCLOPHOSPHAMIDE
     Indication: Plasma cell myeloma
     Route: 042
     Dates: start: 20210821, end: 20210823
  2. FLUDARABINE [Concomitant]
     Active Substance: FLUDARABINE PHOSPHATE
     Indication: Plasma cell myeloma
     Route: 042
     Dates: start: 20210821, end: 20210823
  3. Trimethoprim/sulfametoxazole [Concomitant]
     Indication: Infection prophylaxis
     Dosage: FREQUENCY TEXT: NOT PROVIDED?160/800
     Route: 065
  4. ACYCLOVIR [Concomitant]
     Active Substance: ACYCLOVIR
     Indication: Antiviral prophylaxis
     Dosage: FREQUENCY TEXT: NOT PROVIDED?800
     Route: 065
  5. ACETAMINOPHEN [Concomitant]
     Active Substance: ACETAMINOPHEN
     Indication: Pain prophylaxis
     Dosage: FREQUENCY TEXT: NOT PROVIDED?1000
     Route: 065
     Dates: start: 20210704
  6. ACETAMINOPHEN [Concomitant]
     Active Substance: ACETAMINOPHEN
     Indication: Spinal cord compression
     Dosage: FREQUENCY TEXT: NOT PROVIDED?1
     Route: 065
     Dates: start: 20210811, end: 20210816
  7. OXYCODONE [Concomitant]
     Active Substance: OXYCODONE
     Indication: Bone pain
     Dosage: FREQUENCY TEXT: NOT PROVIDED?2
     Route: 065
     Dates: start: 20210802
  8. Puntualsenna [Concomitant]
     Indication: Constipation
     Dosage: FREQUENCY TEXT: NOT PROVIDED?15
     Route: 065
     Dates: start: 20210802
  9. CASENLAX [Concomitant]
     Indication: Constipation
     Dosage: FREQUENCY TEXT: NOT PROVIDED?10000
     Route: 065
     Dates: start: 20210802
  10. MORPHINE [Concomitant]
     Active Substance: MORPHINE
     Indication: Spinal cord compression
     Dosage: FREQUENCY TEXT: NOT PROVIDED?10
     Route: 065
     Dates: start: 20210811, end: 20210813
  11. FENTANYL [Concomitant]
     Active Substance: FENTANYL
     Indication: Pain prophylaxis
     Dosage: 1
     Route: 065
     Dates: start: 20210704
  12. MUPIROCIN [Concomitant]
     Active Substance: MUPIROCIN
     Indication: Central venous catheter removal
     Dosage: 1
     Route: 065
     Dates: start: 20210704
  13. ALLOPURINOL [Concomitant]
     Active Substance: ALLOPURINOL
     Indication: Prophylaxis
     Route: 065
     Dates: start: 20210820, end: 20210826

REACTIONS (2)
  - Tumour lysis syndrome [Recovered/Resolved]
  - Haemophagocytic lymphohistiocytosis [Recovered/Resolved]

NARRATIVE: CASE EVENT DATE: 20210831
